FAERS Safety Report 21556016 (Version 1)
Quarter: 2022Q4

REPORT INFORMATION
  Report Type: Spontaneous
  Country: HR (occurrence: HR)
  Receive Date: 20221104
  Receipt Date: 20221104
  Transmission Date: 20230113
  Serious: Yes (Other)
  Sender: FDA-Public Use
  Company Number: None

PATIENT
  Sex: Female

DRUGS (3)
  1. RAMIPRIL [Suspect]
     Active Substance: RAMIPRIL
     Indication: Product used for unknown indication
     Dosage: UNIT DOSE :   320 MG, FREQUENCY TIME : 1 DAY, DURATION : 1 DAY
     Route: 065
     Dates: start: 20220915, end: 20220915
  2. TRAMADOL [Suspect]
     Active Substance: TRAMADOL
     Indication: Product used for unknown indication
     Dosage: UNKNOWN, FREQUENCY TIME : 1 DAY, DURATION : 1 DAY
     Route: 065
     Dates: start: 20220915, end: 20220915
  3. DIAZEPAM [Suspect]
     Active Substance: DIAZEPAM
     Indication: Product used for unknown indication
     Dosage: UNIT DOSE :  150 MG, FREQUENCY TIME : 1 DAY, DURATION : 1 DAY
     Route: 065
     Dates: start: 20220915, end: 20220915

REACTIONS (3)
  - Fatigue [Unknown]
  - Intentional overdose [Unknown]
  - Suicide attempt [Unknown]

NARRATIVE: CASE EVENT DATE: 20220915
